FAERS Safety Report 7928374-5 (Version None)
Quarter: 2011Q4

REPORT INFORMATION
  Report Type: 
  Country: None (occurrence: None)
  Receive Date: 20111118
  Receipt Date: 20111109
  Transmission Date: 20120403
  Serious: Yes (Hospitalization)
  Sender: FDA-Public Use
  Company Number: US-JNJFOC-20111104186

PATIENT
  Sex: Female
  Weight: 64.41 kg

DRUGS (3)
  1. HUMIRA [Suspect]
     Indication: CROHN'S DISEASE
     Dates: start: 20080101, end: 20090101
  2. REMICADE [Suspect]
     Indication: CROHN'S DISEASE
     Route: 042
  3. REMICADE [Suspect]
     Route: 042
     Dates: start: 20030101, end: 20080101

REACTIONS (5)
  - HYPERTENSION [None]
  - HAEMATEMESIS [None]
  - SMALL INTESTINAL OBSTRUCTION [None]
  - HEART RATE INCREASED [None]
  - CARDIAC DISORDER [None]
